FAERS Safety Report 4577106-X (Version None)
Quarter: 2005Q1

REPORT INFORMATION
  Report Type: 
  Country: None (occurrence: None)
  Receive Date: 20050208
  Receipt Date: 20050124
  Transmission Date: 20050727
  Serious: Yes (Hospitalization, Other)
  Sender: FDA-Public Use
  Company Number: 2005S1000292

PATIENT
  Age: 82 Year
  Sex: Female

DRUGS (15)
  1. CLONIDINE HCL [Suspect]
     Indication: HYPERTENSION
     Dosage: 0.1 MG Q HS, ORAL
     Route: 048
     Dates: start: 20040101, end: 20050124
  2. PERPHENAZINE AND AMITRIPTYLINE HYDROCHLORIDE TABLETS 2MG/10MG MYLAN [Suspect]
     Indication: ANXIETY
     Dosage: 2MG/10MG QID, ORAL
     Route: 048
     Dates: start: 19900101
  3. METOPROLOL SUCCINATE [Concomitant]
  4. AMLODIPINE [Concomitant]
  5. LISINOPRIL [Concomitant]
  6. PROPOXYPHENE NAPSYLATE W/ ACETAMINOPHEN [Concomitant]
  7. GLIMEPIRIDE [Concomitant]
  8. ISOSORBIDE MONOHYDRATE [Concomitant]
  9. ALPRAZOLAM [Concomitant]
  10. SERTRALINE [Concomitant]
  11. SIMVASTATIN [Concomitant]
  12. MOEXIPRIL HCL [Concomitant]
  13. METAXALONE [Concomitant]
  14. HYDROCODONE BITARTRATE + ACETAMINOPHEN [Concomitant]
  15. BETAXOLOL [Concomitant]

REACTIONS (2)
  - BLOOD PRESSURE INCREASED [None]
  - DRUG INTERACTION [None]
